FAERS Safety Report 13333686 (Version 3)
Quarter: 2018Q1

REPORT INFORMATION
  Report Type: Report from Study
  Country: US (occurrence: US)
  Receive Date: 20170314
  Receipt Date: 20180130
  Transmission Date: 20180508
  Serious: Yes (Other)
  Sender: FDA-Public Use
  Company Number: US-009507513-1703USA002239

PATIENT
  Age: 57 Year
  Sex: Female

DRUGS (5)
  1. PANTOPRAZOLE [Concomitant]
     Active Substance: PANTOPRAZOLE
     Dosage: UNK
  2. GASTROINTESTINAL PREPARATIONS (UNSPECIFIED) [Concomitant]
     Active Substance: UNSPECIFIED INGREDIENT
     Dosage: UNK
  3. PEMBROLIZUMAB. [Suspect]
     Active Substance: PEMBROLIZUMAB
     Indication: GASTROINTESTINAL MELANOMA
     Dosage: UNK, EVERY 3 WEEKS
     Route: 042
     Dates: start: 20170208, end: 20170607
  4. CORTICOSTEROIDS (UNSPECIFIED) [Concomitant]
     Active Substance: UNSPECIFIED INGREDIENT
  5. OXYCODONE [Concomitant]
     Active Substance: OXYCODONE
     Dosage: UNK

REACTIONS (4)
  - Drug dose omission [Unknown]
  - Malignant neoplasm progression [Unknown]
  - Fatigue [Unknown]
  - Liver function test increased [Unknown]

NARRATIVE: CASE EVENT DATE: 2017
